FAERS Safety Report 7861678-3 (Version None)
Quarter: 2011Q4

REPORT INFORMATION
  Report Type: 
  Country: None (occurrence: None)
  Receive Date: 20111027
  Receipt Date: 20111020
  Transmission Date: 20120403
  Serious: Yes (Other)
  Sender: FDA-Public Use
  Company Number: US-US-EMD SERONO, INC.-7086310

PATIENT
  Sex: Female
  Weight: 73 kg

DRUGS (3)
  1. REBIF [Suspect]
     Indication: MULTIPLE SCLEROSIS
     Route: 058
     Dates: start: 20090626
  2. LYRICA [Concomitant]
     Indication: FIBROMYALGIA
  3. LYRICA [Concomitant]
     Indication: PAIN

REACTIONS (3)
  - THROMBOSIS [None]
  - CATARACT [None]
  - BLOOD CHOLESTEROL INCREASED [None]
